FAERS Safety Report 6415261-7 (Version None)
Quarter: 2009Q4

REPORT INFORMATION
  Report Type: 
  Country: None (occurrence: None)
  Receive Date: 20091022
  Receipt Date: 20091007
  Transmission Date: 20100525
  Serious: Yes (Other)
  Sender: FDA-Public Use
  Company Number: 409070

PATIENT
  Age: 66 Year
  Sex: Male

DRUGS (1)
  1. PACLITAXEL [Suspect]
     Indication: LUNG NEOPLASM MALIGNANT
     Dosage: 290 MG, UNKNOWN, INTRAVENOUS
     Route: 042
     Dates: start: 20080220, end: 20080220

REACTIONS (3)
  - ANXIETY [None]
  - DYSPNOEA [None]
  - RENAL PAIN [None]
